FAERS Safety Report 7534661-5 (Version None)
Quarter: 2011Q2

REPORT INFORMATION
  Report Type: 
  Country: None (occurrence: None)
  Receive Date: 20110609
  Receipt Date: 20110214
  Transmission Date: 20111010
  Serious: Yes (Hospitalization, Other)
  Sender: FDA-Public Use
  Company Number: PHHY2009CA16620

PATIENT
  Sex: Female

DRUGS (5)
  1. HYDROCHLOROTHIAZIDE [Concomitant]
     Dosage: 75 MG /DAY
  2. METOPROLOL [Concomitant]
     Dosage: 50 MG, BID
  3. SANDOSTATIN LAR [Suspect]
     Indication: ACROMEGALY
     Dosage: 10 MG EVERY FOUR WEEKS
     Route: 030
     Dates: start: 20090325, end: 20100202
  4. LEVOTHYROXINE SODIUM [Concomitant]
     Dosage: UNK
     Dates: start: 20090501
  5. RAMIPRIL [Concomitant]
     Dosage: 5 MG, QD
     Route: 048
     Dates: start: 20091008

REACTIONS (7)
  - BLOOD PROLACTIN INCREASED [None]
  - HAIR DISORDER [None]
  - THYROID CANCER [None]
  - HAIR GROWTH ABNORMAL [None]
  - BILE DUCT OBSTRUCTION [None]
  - BLOOD GROWTH HORMONE INCREASED [None]
  - ALOPECIA [None]
